FAERS Safety Report 11884997 (Version 4)
Quarter: 2016Q1

REPORT INFORMATION
  Report Type: Report from Study
  Country: US (occurrence: US)
  Receive Date: 20160104
  Receipt Date: 20160316
  Transmission Date: 20160526
  Serious: No
  Sender: FDA-Public Use
  Company Number: US-AMGEN-USASL2015140343

PATIENT
  Age: 77 Year
  Sex: Female

DRUGS (2)
  1. DIGITALIS [Concomitant]
     Active Substance: DIGITALIS
     Dosage: UNK
  2. ENBREL [Suspect]
     Active Substance: ETANERCEPT
     Indication: PSORIASIS
     Dosage: 50 MG, WEEKLY
     Route: 065
     Dates: start: 201509

REACTIONS (7)
  - Scab [Unknown]
  - Skin haemorrhage [Unknown]
  - Chest pain [Unknown]
  - Macule [Unknown]
  - Acne [Unknown]
  - Pain [Unknown]
  - Erythema [Unknown]
